FAERS Safety Report 17218286 (Version 1)
Quarter: 2019Q4

REPORT INFORMATION
  Report Type: Spontaneous
  Country: GB (occurrence: GB)
  Receive Date: 20191231
  Receipt Date: 20191231
  Transmission Date: 20200122
  Serious: Yes (Hospitalization)
  Sender: FDA-Public Use
  Company Number: GB-TEVA-2019-GB-1159466

PATIENT
  Age: 34 Year
  Sex: Male

DRUGS (14)
  1. CITALOPRAM [Concomitant]
     Active Substance: CITALOPRAM HYDROBROMIDE
  2. CODEINE [Concomitant]
     Active Substance: CODEINE
  3. NAPROXEN. [Interacting]
     Active Substance: NAPROXEN
     Route: 065
  4. MELOXICAM. [Suspect]
     Active Substance: MELOXICAM
     Route: 065
  5. PREGABALIN. [Concomitant]
     Active Substance: PREGABALIN
  6. RISPERIDONE. [Concomitant]
     Active Substance: RISPERIDONE
  7. PROCYCLIDINE [Concomitant]
     Active Substance: PROCYCLIDINE
  8. MIRTAZAPINE. [Concomitant]
     Active Substance: MIRTAZAPINE
  9. PRAZOSIN. [Concomitant]
     Active Substance: PRAZOSIN
  10. DEPAKOTE [Concomitant]
     Active Substance: DIVALPROEX SODIUM
  11. SILDENAFIL. [Concomitant]
     Active Substance: SILDENAFIL
  12. PARACETAMOL [Concomitant]
     Active Substance: ACETAMINOPHEN
  13. COCAINE [Concomitant]
     Active Substance: COCAINE
  14. ZOPICLONE [Concomitant]
     Active Substance: ZOPICLONE

REACTIONS (4)
  - Drug interaction [Unknown]
  - Abdominal pain [Unknown]
  - Vomiting [Unknown]
  - Duodenal ulcer perforation [Recovering/Resolving]
